FAERS Safety Report 5834896-3 (Version None)
Quarter: 2008Q3

REPORT INFORMATION
  Report Type: 
  Country: None (occurrence: None)
  Receive Date: 20080804
  Receipt Date: 20080724
  Transmission Date: 20090109
  Serious: Yes (Hospitalization)
  Sender: FDA-Public Use
  Company Number: IPS_01196_2008

PATIENT
  Sex: Male

DRUGS (1)
  1. APO-GO (APO-GO - APOMORPHINE HYDROCHLORIDE) (NOT SPECIFIED) [Suspect]
     Indication: DRUG USE FOR UNKNOWN INDICATION
     Dosage: DF FOR UNKNOWN  SUBCUTANEOUS
     Route: 058

REACTIONS (1)
  - BOWEL MOVEMENT IRREGULARITY [None]
